FAERS Safety Report 4280418-0 (Version None)
Quarter: 2004Q1

REPORT INFORMATION
  Report Type: 
  Country: None (occurrence: None)
  Receive Date: 20040127
  Receipt Date: 20040119
  Transmission Date: 20041129
  Serious: Yes (Hospitalization)
  Sender: FDA-Public Use
  Company Number: 200410148DE

PATIENT
  Age: 67 Year
  Sex: Female
  Weight: 65 kg

DRUGS (12)
  1. LASIX [Suspect]
     Indication: RENAL DISORDER
     Dosage: 20 MG QD PO
     Route: 048
     Dates: start: 20030201, end: 20030609
  2. NORVASC [Suspect]
     Indication: HYPERTENSION
     Dosage: 5 MG QD PO
     Route: 048
     Dates: start: 20010201
  3. PREDNISOLONE [Suspect]
     Indication: GLOMERULONEPHRITIS CHRONIC
     Dosage: 30 MG QD PO
     Route: 048
     Dates: start: 20030201, end: 20030601
  4. PREDNISOLONE [Suspect]
     Indication: GLOMERULONEPHRITIS CHRONIC
     Dosage: 15 MG QD PO
     Route: 048
     Dates: start: 20030601
  5. AQUAPHOR [Concomitant]
  6. CALCIMAGON [Concomitant]
  7. CONCOR [Concomitant]
  8. NOVONORM [Concomitant]
  9. PANTOZOL [Concomitant]
  10. PHYSIOTENS [Concomitant]
  11. PRES [Concomitant]
  12. ZOCOR [Concomitant]

REACTIONS (10)
  - ASTHENIA [None]
  - BLOOD CALCIUM DECREASED [None]
  - BLOOD CREATININE INCREASED [None]
  - BLOOD POTASSIUM INCREASED [None]
  - BLOOD SODIUM DECREASED [None]
  - BLOOD UREA INCREASED [None]
  - DIABETES MELLITUS [None]
  - DRUG INTERACTION [None]
  - HAEMOGLOBIN DECREASED [None]
  - WHITE BLOOD CELL COUNT INCREASED [None]
